FAERS Safety Report 22162336 (Version 1)
Quarter: 2023Q1

REPORT INFORMATION
  Report Type: Spontaneous
  Country: US (occurrence: US)
  Receive Date: 20230331
  Receipt Date: 20230331
  Transmission Date: 20230418
  Serious: No
  Sender: FDA-Public Use
  Company Number: US-PFIZER INC-202300138182

PATIENT
  Age: 59 Year
  Sex: Female
  Weight: 90.72 kg

DRUGS (1)
  1. PAXLOVID [Suspect]
     Active Substance: NIRMATRELVIR\RITONAVIR
     Indication: COVID-19 treatment
     Dosage: FOLLOWING PACKAGE INSTRUCTIONS WITH WATER
     Dates: start: 20230327

REACTIONS (5)
  - Anosmia [Not Recovered/Not Resolved]
  - Ageusia [Unknown]
  - Dysgeusia [Unknown]
  - Taste disorder [Unknown]
  - Expired product administered [Unknown]

NARRATIVE: CASE EVENT DATE: 20230328
